FAERS Safety Report 4867768-1 (Version None)
Quarter: 2005Q4

REPORT INFORMATION
  Report Type: 
  Country: None (occurrence: None)
  Receive Date: 20051228
  Receipt Date: 20051216
  Transmission Date: 20060501
  Serious: Yes (Hospitalization)
  Sender: FDA-Public Use
  Company Number: US-KINGPHARMUSA00001-K200501618

PATIENT
  Age: 80 Year
  Sex: Female
  Weight: 67 kg

DRUGS (5)
  1. ALTACE [Suspect]
     Indication: PROPHYLAXIS
     Dosage: 10 MG, Q AM
     Route: 048
     Dates: start: 20030101
  2. ALTACE [Suspect]
     Dosage: 2.5 MG IN AM; 5 MG IN PM
     Route: 048
  3. ALTACE [Suspect]
     Dosage: 5 MG AM + PM, QD
  4. ALTACE [Suspect]
     Dosage: 2.5 MG IN AM; 5 MG IN PM
     Route: 048
  5. GLYBURIDE [Concomitant]
     Indication: DIABETES MELLITUS
     Route: 048

REACTIONS (6)
  - ACTIVITIES OF DAILY LIVING IMPAIRED [None]
  - CARDIAC FAILURE CONGESTIVE [None]
  - FEELING ABNORMAL [None]
  - FEELING DRUNK [None]
  - GAIT DISTURBANCE [None]
  - MYOCARDIAL INFARCTION [None]
